FAERS Safety Report 16918572 (Version 3)
Quarter: 2019Q4

REPORT INFORMATION
  Report Type: Spontaneous
  Country: US (occurrence: US)
  Receive Date: 20191015
  Receipt Date: 20191114
  Transmission Date: 20200122
  Serious: Yes (Disabling, Other)
  Sender: FDA-Public Use
  Company Number: US-PFIZER INC-2019443493

PATIENT
  Age: 73 Year
  Sex: Female

DRUGS (1)
  1. LYRICA [Suspect]
     Active Substance: PREGABALIN
     Dosage: 75 MG, 4X/DAY
     Route: 048

REACTIONS (9)
  - Limb discomfort [Unknown]
  - Therapeutic product effect incomplete [Unknown]
  - Upper limb fracture [Recovering/Resolving]
  - Limb injury [Recovering/Resolving]
  - Fall [Unknown]
  - Off label use [Unknown]
  - Dysgraphia [Not Recovered/Not Resolved]
  - Insomnia [Unknown]
  - Humerus fracture [Recovering/Resolving]
